FAERS Safety Report 15375212 (Version 1)
Quarter: 2018Q3

REPORT INFORMATION
  Report Type: Spontaneous
  Country: US (occurrence: US)
  Receive Date: 20180912
  Receipt Date: 20180912
  Transmission Date: 20181010
  Serious: Yes (Other)
  Sender: FDA-Public Use
  Company Number: US-GLAXOSMITHKLINE-US2018162975

PATIENT
  Age: 72 Year
  Sex: Male

DRUGS (2)
  1. VOLTAREN [Suspect]
     Active Substance: DICLOFENAC SODIUM
     Indication: ARTHRITIS
     Dosage: UNK
  2. VOLTAREN [Suspect]
     Active Substance: DICLOFENAC SODIUM
     Indication: MUSCULOSKELETAL PAIN

REACTIONS (6)
  - Product use in unapproved indication [Unknown]
  - Product use issue [Unknown]
  - Pain in extremity [Recovering/Resolving]
  - Extra dose administered [Unknown]
  - Chest pain [Recovering/Resolving]
  - Angina pectoris [Recovering/Resolving]
